FAERS Safety Report 20665000 (Version 2)
Quarter: 2022Q2

REPORT INFORMATION
  Report Type: Spontaneous
  Country: US (occurrence: US)
  Receive Date: 20220401
  Receipt Date: 20220411
  Transmission Date: 20220721
  Serious: Yes (Other)
  Sender: FDA-Public Use
  Company Number: US-PFIZER INC-202200276367

PATIENT
  Age: 55 Year
  Sex: Female

DRUGS (1)
  1. XELJANZ XR [Suspect]
     Active Substance: TOFACITINIB CITRATE
     Indication: Rheumatoid arthritis
     Dosage: 11 MG, 1X/DAY
     Route: 048
     Dates: start: 20220129, end: 2022

REACTIONS (10)
  - Depression suicidal [Unknown]
  - Abdominal pain upper [Recovering/Resolving]
  - Condition aggravated [Not Recovered/Not Resolved]
  - Headache [Not Recovered/Not Resolved]
  - Weight increased [Recovering/Resolving]
  - Constipation [Not Recovered/Not Resolved]
  - Renal cyst [Unknown]
  - Hepatic cyst [Unknown]
  - Benign hepatic neoplasm [Unknown]
  - Benign renal neoplasm [Unknown]
